FAERS Safety Report 5529192-8 (Version None)
Quarter: 2007Q4

REPORT INFORMATION
  Report Type: 
  Country: None (occurrence: None)
  Receive Date: 20071129
  Receipt Date: 20070803
  Transmission Date: 20080405
  Serious: No
  Sender: FDA-Public Use
  Company Number: A0649318A

PATIENT
  Age: 45 Year
  Sex: Male
  Weight: 109.1 kg

DRUGS (1)
  1. BUPROPION HYDROCHLORIDE [Suspect]
     Indication: DRUG USE FOR UNKNOWN INDICATION
     Dosage: 200MG PER DAY
     Route: 048
     Dates: start: 20070423, end: 20070423

REACTIONS (5)
  - DYSGEUSIA [None]
  - ERUCTATION [None]
  - NAUSEA [None]
  - PAROSMIA [None]
  - PHARMACEUTICAL PRODUCT COMPLAINT [None]
